FAERS Safety Report 5642928-0 (Version None)
Quarter: 2008Q1

REPORT INFORMATION
  Report Type: 
  Country: None (occurrence: None)
  Receive Date: 20080228
  Receipt Date: 20080222
  Transmission Date: 20080703
  Serious: Yes (Death, Life-Threatening)
  Sender: FDA-Public Use
  Company Number: HOAFF19343

PATIENT
  Age: 42 Year
  Sex: Male

DRUGS (3)
  1. HALDOL [Suspect]
     Indication: ALCOHOL WITHDRAWAL SYNDROME
     Route: 041
  2. CLONIDINE HCL [Suspect]
     Indication: ALCOHOL WITHDRAWAL SYNDROME
     Route: 041
  3. POTASSIUM CHLORIDE [Concomitant]

REACTIONS (5)
  - ELECTROCARDIOGRAM QT PROLONGED [None]
  - EXTRASYSTOLES [None]
  - VENTRICULAR ARRHYTHMIA [None]
  - VENTRICULAR EXTRASYSTOLES [None]
  - VENTRICULAR FLUTTER [None]
